FAERS Safety Report 13989848 (Version 1)
Quarter: 2017Q3

REPORT INFORMATION
  Report Type: Spontaneous
  Country: US (occurrence: None)
  Receive Date: 20170920
  Receipt Date: 20170920
  Transmission Date: 20171128
  Serious: Yes (Death)
  Sender: FDA-Public Use
  Company Number: None

PATIENT
  Age: 42 Year
  Sex: Female

DRUGS (5)
  1. ZANTAC [Concomitant]
     Active Substance: RANITIDINE HYDROCHLORIDE
  2. XOLAIR [Suspect]
     Active Substance: OMALIZUMAB
     Indication: IDIOPATHIC URTICARIA
     Dosage: 150 MG EVERY FOUR WEEKS SUBCUTANEOUSLY
     Route: 058
     Dates: start: 201707, end: 201709
  3. SINGULAIR [Concomitant]
     Active Substance: MONTELUKAST SODIUM
  4. ZYRTEC [Concomitant]
     Active Substance: CETIRIZINE HYDROCHLORIDE
  5. CLARITIN [Concomitant]
     Active Substance: LORATADINE

REACTIONS (1)
  - Death [None]

NARRATIVE: CASE EVENT DATE: 20170913
